FAERS Safety Report 23762332 (Version 1)
Quarter: 2024Q2

REPORT INFORMATION
  Report Type: Spontaneous
  Country: US (occurrence: None)
  Receive Date: 20240418
  Receipt Date: 20240418
  Transmission Date: 20240716
  Serious: Yes (Other)
  Sender: FDA-Public Use
  Company Number: None

PATIENT
  Age: 37 Year
  Sex: Female
  Weight: 76.05 kg

DRUGS (1)
  1. TRAZODONE HYDROCHLORIDE [Suspect]
     Active Substance: TRAZODONE HYDROCHLORIDE
     Indication: Insomnia
     Dosage: OTHER QUANTITY : 1 TABLET(S);?FREQUENCY : AT BEDTIME;?
     Route: 048
     Dates: start: 20240417, end: 20240418

REACTIONS (15)
  - Paraesthesia [None]
  - Headache [None]
  - Eye pain [None]
  - Swelling face [None]
  - Eye swelling [None]
  - Swollen tongue [None]
  - Palpitations [None]
  - Dyspnoea [None]
  - Dizziness [None]
  - Nausea [None]
  - Diarrhoea [None]
  - Tremor [None]
  - Flank pain [None]
  - Discomfort [None]
  - Insomnia [None]

NARRATIVE: CASE EVENT DATE: 20240418
